FAERS Safety Report 7985653-3 (Version None)
Quarter: 2011Q4

REPORT INFORMATION
  Report Type: 
  Country: None (occurrence: None)
  Receive Date: 20111216
  Receipt Date: 20111208
  Transmission Date: 20120403
  Serious: Yes (Other)
  Sender: FDA-Public Use
  Company Number: JP-BRISTOL-MYERS SQUIBB COMPANY-16230237

PATIENT
  Age: 54 Year
  Sex: Male

DRUGS (8)
  1. LANSOPRAZOLE [Concomitant]
     Route: 048
     Dates: start: 20071108
  2. BASEN [Concomitant]
     Route: 048
     Dates: start: 20070322
  3. METFORMIN HCL [Suspect]
     Indication: TYPE 2 DIABETES MELLITUS
     Route: 048
     Dates: start: 20110714, end: 20111006
  4. AMARYL [Concomitant]
     Route: 048
     Dates: start: 20090903
  5. METFORMIN HCL [Concomitant]
     Route: 048
     Dates: start: 20100218, end: 20110714
  6. ASPIRIN [Concomitant]
     Route: 048
     Dates: start: 20050120
  7. GASMOTIN [Concomitant]
     Route: 048
     Dates: start: 20100930
  8. CRESTOR [Concomitant]
     Route: 048
     Dates: start: 20071004

REACTIONS (3)
  - ASPARTATE AMINOTRANSFERASE INCREASED [None]
  - ALANINE AMINOTRANSFERASE INCREASED [None]
  - HEPATIC FUNCTION ABNORMAL [None]
